FAERS Safety Report 5731768-X (Version None)
Quarter: 2008Q2

REPORT INFORMATION
  Report Type: 
  Country: None (occurrence: None)
  Receive Date: 20080508
  Receipt Date: 20080430
  Transmission Date: 20081010
  Serious: Yes (Hospitalization, Other)
  Sender: FDA-Public Use
  Company Number: US-ROCHE-432352

PATIENT
  Sex: Female
  Weight: 72.6 kg

DRUGS (4)
  1. ACCUTANE [Suspect]
     Indication: ACNE
     Route: 048
     Dates: start: 19980925, end: 19990316
  2. ACCUTANE [Suspect]
     Route: 048
     Dates: start: 19990316, end: 19990405
  3. ORTHO TRI-CYCLEN [Concomitant]
     Dosage: FREQUENCY REPORTED AS DAILY.
     Route: 048
     Dates: start: 19981001
  4. ORTHO TRI-CYCLEN [Concomitant]
     Dosage: FREQUENCY REPORTED AS DAILY.
     Route: 048
     Dates: start: 19981001

REACTIONS (25)
  - ADJUSTMENT DISORDER WITH MIXED ANXIETY AND DEPRESSED MOOD [None]
  - ALOPECIA [None]
  - APPENDICITIS [None]
  - CHEILITIS [None]
  - COLITIS [None]
  - CROHN'S DISEASE [None]
  - CYSTOCELE [None]
  - DEAFNESS [None]
  - DEPRESSION [None]
  - DYSTHYMIC DISORDER [None]
  - GASTRITIS [None]
  - GASTROOESOPHAGEAL REFLUX DISEASE [None]
  - HAEMORRHOIDS [None]
  - ILEUS PARALYTIC [None]
  - INFLAMMATORY BOWEL DISEASE [None]
  - INSOMNIA [None]
  - INTESTINAL HAEMORRHAGE [None]
  - IRON DEFICIENCY ANAEMIA [None]
  - IRRITABLE BOWEL SYNDROME [None]
  - OBESITY [None]
  - RADICULOPATHY [None]
  - SMALL INTESTINAL OBSTRUCTION [None]
  - SMEAR CERVIX ABNORMAL [None]
  - STRESS URINARY INCONTINENCE [None]
  - XEROSIS [None]
